FAERS Safety Report 11692195 (Version 2)
Quarter: 2020Q3

REPORT INFORMATION
  Report Type: Spontaneous
  Country: BR (occurrence: BR)
  Receive Date: 20151103
  Receipt Date: 20151112
  Transmission Date: 20201105
  Serious: Yes (Other)
  Sender: FDA-Public Use
  Company Number: BR-ROCHE-1653313

PATIENT
  Age: 82 Year
  Sex: Female

DRUGS (1)
  1. IBANDRONIC ACID. [Suspect]
     Active Substance: IBANDRONIC ACID
     Indication: OSTEOPENIA
     Route: 065

REACTIONS (7)
  - Bone callus excessive [Unknown]
  - Atypical fracture [Unknown]
  - Fall [Unknown]
  - Femur fracture [Unknown]
  - Bone hypertrophy [Unknown]
  - Fracture delayed union [Unknown]
  - Pain in extremity [Unknown]

NARRATIVE: CASE EVENT DATE: 2009
